FAERS Safety Report 5261205-3 (Version None)
Quarter: 2007Q1

REPORT INFORMATION
  Report Type: 
  Country: None (occurrence: None)
  Receive Date: 20070309
  Receipt Date: 20070227
  Transmission Date: 20070707
  Serious: Yes (Death, Hospitalization, Other)
  Sender: FDA-Public Use
  Company Number: GB-PFIZER INC-2007015248

PATIENT
  Age: 33 Year
  Sex: Female

DRUGS (1)
  1. SULFASALAZINE [Suspect]
     Indication: RHEUMATOID ARTHRITIS

REACTIONS (5)
  - ACUTE HEPATIC FAILURE [None]
  - CARDIAC FAILURE [None]
  - DRUG HYPERSENSITIVITY [None]
  - RENAL FAILURE [None]
  - RESPIRATORY FAILURE [None]
